FAERS Safety Report 26099354 (Version 1)
Quarter: 2025Q4

REPORT INFORMATION
  Report Type: Spontaneous
  Country: EU (occurrence: EU)
  Receive Date: 20251128
  Receipt Date: 20251128
  Transmission Date: 20260118
  Serious: Yes (Other)
  Sender: SANDOZ
  Company Number: EU-AMGEN-AUTSP2025220709

PATIENT
  Age: 84 Year
  Sex: Female

DRUGS (8)
  1. CYCLOPHOSPHAMIDE [Suspect]
     Active Substance: CYCLOPHOSPHAMIDE
     Indication: Plasma cell myeloma
     Dosage: UNK
     Route: 065
     Dates: start: 202509
  2. DECADRON (DEXAMETHASONE SODIUM PHOSPHATE) [Suspect]
     Active Substance: DEXAMETHASONE SODIUM PHOSPHATE
     Indication: Plasma cell myeloma
     Dosage: 20 MILLIGRAM, ON DAYS 1, 8, AND 15
     Route: 065
     Dates: start: 202207, end: 202212
  3. DECADRON (DEXAMETHASONE SODIUM PHOSPHATE) [Suspect]
     Active Substance: DEXAMETHASONE SODIUM PHOSPHATE
     Dosage: 20 MILLIGRAM, ON DAYS 1, 8, AND 15
     Route: 065
     Dates: start: 202509
  4. KYPROLIS [Suspect]
     Active Substance: CARFILZOMIB
     Dosage: 20 MILLIGRAM/SQ. METER, DAY 1
     Route: 065
     Dates: start: 20250924
  5. KYPROLIS [Suspect]
     Active Substance: CARFILZOMIB
     Dosage: 56 MILLIGRAM/SQ. METER, ON DAYS 1, 8, AND  15
     Route: 065
     Dates: start: 202509
  6. KYPROLIS [Suspect]
     Active Substance: CARFILZOMIB
     Indication: Plasma cell myeloma
     Dosage: UNK
     Route: 065
     Dates: start: 202207, end: 202212
  7. MEZIGDOMIDE [Suspect]
     Active Substance: MEZIGDOMIDE
     Indication: Plasma cell myeloma
     Dosage: 1 GRAM, ON DAYS 1-21
     Route: 065
     Dates: start: 20250924
  8. ISATUXIMAB [Concomitant]
     Active Substance: ISATUXIMAB
     Indication: Plasma cell myeloma
     Dosage: UNK
     Route: 065
     Dates: start: 202207, end: 202207

REACTIONS (6)
  - Plasma cell myeloma [Unknown]
  - Pneumonia [Unknown]
  - Pericardial effusion [Unknown]
  - Diastolic dysfunction [Unknown]
  - Left atrial enlargement [Unknown]
  - Off label use [Unknown]

NARRATIVE: CASE EVENT DATE: 20250901
